FAERS Safety Report 5657452-9 (Version None)
Quarter: 2008Q1

REPORT INFORMATION
  Report Type: 
  Country: None (occurrence: None)
  Receive Date: 20080310
  Receipt Date: 20080227
  Transmission Date: 20080703
  Serious: Yes (Hospitalization, Other)
  Sender: FDA-Public Use
  Company Number: JP-ELI_LILLY_AND_COMPANY-JP200802001266

PATIENT
  Sex: Female
  Weight: 60 kg

DRUGS (3)
  1. EVISTA [Suspect]
     Indication: OSTEOPOROSIS POSTMENOPAUSAL
     Dosage: 60 MG, DAILY (1/D)
     Route: 048
     Dates: start: 20080118, end: 20080118
  2. KASHILON [Concomitant]
     Dosage: 10 ML, DAILY (1/D)
     Route: 042
     Dates: start: 20080117, end: 20080118
  3. SHAKUYAKUKANZOUBUSHITOU [Concomitant]
     Dosage: 1.5 G, 3/D
     Route: 048
     Dates: start: 20080117, end: 20080118

REACTIONS (1)
  - ANAPHYLACTIC SHOCK [None]
